FAERS Safety Report 5724882-6 (Version None)
Quarter: 2008Q2

REPORT INFORMATION
  Report Type: 
  Country: None (occurrence: None)
  Receive Date: 20080430
  Receipt Date: 20080430
  Transmission Date: 20081010
  Serious: Yes (Hospitalization)
  Sender: FDA-Public Use
  Company Number: None

PATIENT
  Sex: Female
  Weight: 42.4 kg

DRUGS (7)
  1. ERBITUX [Suspect]
     Dosage: 357.5 MG
  2. CISPLATIN [Suspect]
  3. COMPAZINE [Concomitant]
  4. FERROUS SULFATE TAB [Concomitant]
  5. GUAIFENESIN [Concomitant]
  6. MAGNESIUM OXIDE [Concomitant]
  7. SENEKOT-S [Concomitant]

REACTIONS (1)
  - THROMBOCYTOPENIA [None]
